FAERS Safety Report 5871892-4 (Version None)
Quarter: 2008Q3

REPORT INFORMATION
  Report Type: 
  Country: None (occurrence: None)
  Receive Date: 20080904
  Receipt Date: 20080904
  Transmission Date: 20090109
  Serious: Yes (Life-Threatening)
  Sender: FDA-Public Use
  Company Number: None

PATIENT
  Sex: Female
  Weight: 114.76 kg

DRUGS (8)
  1. MIRAPEX [Suspect]
     Indication: DEPRESSION
     Dosage: 50 MG ONCE DAILY PO
     Route: 048
     Dates: start: 20080701, end: 20080814
  2. MIRAPEX [Suspect]
     Indication: DEPRESSION
     Dosage: 75 MG ONCE DAILY PO,
     Route: 048
     Dates: start: 20080816, end: 20080827
  3. AVAPRO [Concomitant]
  4. SAM-E [Concomitant]
  5. VITAMIN B [Concomitant]
  6. LIPITOR [Concomitant]
  7. ASPIRIN [Concomitant]
  8. APRAZOLAM [Concomitant]

REACTIONS (2)
  - IMPAIRED DRIVING ABILITY [None]
  - SLEEP DISORDER [None]
